FAERS Safety Report 4518971-1 (Version None)
Quarter: 2004Q4

REPORT INFORMATION
  Report Type: 
  Country: None (occurrence: None)
  Receive Date: 20041203
  Receipt Date: 20041203
  Transmission Date: 20050328
  Serious: No
  Sender: FDA-Public Use
  Company Number: None

PATIENT
  Sex: Male
  Weight: 87 kg

DRUGS (3)
  1. ATORVASTATIN CALCIUM [Suspect]
     Indication: HYPERLIPIDAEMIA
     Dosage: 20MG  QHS ORAL
     Route: 048
     Dates: start: 20010419, end: 20041104
  2. OMEPRAZOLE [Concomitant]
  3. RANITIDINE [Concomitant]

REACTIONS (1)
  - MYALGIA [None]
